FAERS Safety Report 17868199 (Version 5)
Quarter: 2020Q3

REPORT INFORMATION
  Report Type: Report from Study
  Country: CN (occurrence: CN)
  Receive Date: 20200605
  Receipt Date: 20200930
  Transmission Date: 20201103
  Serious: Yes (Death)
  Sender: FDA-Public Use
  Company Number: CN-ROCHE-2613997

PATIENT
  Age: 44 Year
  Sex: Female
  Weight: 50.9 kg

DRUGS (10)
  1. OXYCODONE [Concomitant]
     Active Substance: OXYCODONE
  2. ATEZOLIZUMAB. [Suspect]
     Active Substance: ATEZOLIZUMAB
     Indication: HEPATOCELLULAR CARCINOMA
     Dosage: ON 24/APR/2020: MOST RECENT DOSE OF ATEZOLIZUMAB PRIOR TO THE EVENT
     Route: 041
     Dates: start: 20200424, end: 20200522
  3. SENNOSIDE [Concomitant]
     Active Substance: SENNOSIDES
  4. CABOZANTINIB [Suspect]
     Active Substance: CABOZANTINIB
     Indication: HEPATOCELLULAR CARCINOMA
     Dosage: 14/MAY/2020, MOST RECENT DOSE OF CABOZANTINIB PRIOR TO THE EVEN
     Route: 048
     Dates: start: 20200424, end: 20200522
  5. OXYBUTYNIN. [Concomitant]
     Active Substance: OXYBUTYNIN CHLORIDE
  6. MORPHINE SULPHATE [Concomitant]
     Active Substance: MORPHINE SULFATE
     Route: 048
     Dates: start: 20200512, end: 20200604
  7. TRAMADOL. [Concomitant]
     Active Substance: TRAMADOL
  8. LOPERAMIDE [Concomitant]
     Active Substance: LOPERAMIDE
  9. CELECOXIB. [Concomitant]
     Active Substance: CELECOXIB
     Route: 048
     Dates: start: 20200414, end: 20200604
  10. XYLMOL [Concomitant]

REACTIONS (1)
  - Drug-induced liver injury [Fatal]

NARRATIVE: CASE EVENT DATE: 20200522
